FAERS Safety Report 6463721-5 (Version None)
Quarter: 2009Q4

REPORT INFORMATION
  Report Type: 
  Country: None (occurrence: None)
  Receive Date: 20091123
  Receipt Date: 20091109
  Transmission Date: 20100525
  Serious: Yes (Other)
  Sender: FDA-Public Use
  Company Number: CERZ-1000988

PATIENT
  Age: 40 Year
  Sex: Male
  Weight: 68 kg

DRUGS (7)
  1. CEREZYME [Suspect]
     Indication: GAUCHER'S DISEASE
     Dosage: 60 U, Q2W, INTRAVENOUS; 30 U/KG, Q2W, INTRAVENOUS
     Route: 042
     Dates: start: 20040907, end: 20060601
  2. CEREZYME [Suspect]
     Indication: GAUCHER'S DISEASE
     Dosage: 60 U, Q2W, INTRAVENOUS; 30 U/KG, Q2W, INTRAVENOUS
     Route: 042
     Dates: start: 20060601, end: 20081210
  3. CEREZYME [Suspect]
     Indication: GAUCHER'S DISEASE
     Dosage: 60 U, Q2W, INTRAVENOUS; 30 U/KG, Q2W, INTRAVENOUS
     Route: 042
     Dates: start: 20090211, end: 20090506
  4. CEREZYME [Suspect]
  5. CEREZYME [Suspect]
  6. CEREZYME [Suspect]
  7. CLONAZEPAM [Concomitant]

REACTIONS (10)
  - ARTHRALGIA [None]
  - BONE DISORDER [None]
  - DRUG DOSE OMISSION [None]
  - GAIT DISTURBANCE [None]
  - MUSCULOSKELETAL PAIN [None]
  - PAIN IN EXTREMITY [None]
  - PARKINSONISM [None]
  - SERUM FERRITIN INCREASED [None]
  - THROMBOCYTOPENIA [None]
  - WHITE BLOOD CELL COUNT DECREASED [None]
